FAERS Safety Report 7677292-9 (Version None)
Quarter: 2011Q3

REPORT INFORMATION
  Report Type: 
  Country: None (occurrence: None)
  Receive Date: 20110811
  Receipt Date: 20110802
  Transmission Date: 20111222
  Serious: Yes (Death, Hospitalization, Other)
  Sender: FDA-Public Use
  Company Number: US-BAXTER-2011BH022675

PATIENT
  Sex: Male

DRUGS (1)
  1. DIANEAL [Suspect]
     Indication: PERITONEAL DIALYSIS
     Route: 033

REACTIONS (12)
  - GASTROINTESTINAL NECROSIS [None]
  - VOMITING [None]
  - MESENTERIC OCCLUSION [None]
  - ABDOMINAL PAIN [None]
  - PERITONEAL DIALYSIS COMPLICATION [None]
  - DIARRHOEA [None]
  - PERITONITIS BACTERIAL [None]
  - FALL [None]
  - ASTHENIA [None]
  - HYPOTENSION [None]
  - HYPOVOLAEMIA [None]
  - CARDIAC ARREST [None]
